FAERS Safety Report 10306971 (Version 3)
Quarter: 2014Q4

REPORT INFORMATION
  Report Type: Spontaneous
  Country: IT (occurrence: IT)
  Receive Date: 20140715
  Receipt Date: 20141003
  Transmission Date: 20150528
  Serious: Yes (Hospitalization)
  Sender: FDA-Public Use
  Company Number: PHHY2014IT082604

PATIENT
  Age: 20 Year
  Sex: Female

DRUGS (3)
  1. VALPROIC ACID. [Suspect]
     Active Substance: VALPROIC ACID
     Indication: DRUG ABUSE
     Dosage: 5 G, ONCE/SINGLE
     Route: 048
     Dates: start: 20140123, end: 20140123
  2. BUPROPION [Suspect]
     Active Substance: BUPROPION
     Indication: DRUG ABUSE
     Dosage: 1650 MG, ONCE/SINGLE
     Route: 048
     Dates: start: 20140123, end: 20140123
  3. BUPRENORPHINE [Concomitant]
     Active Substance: BUPRENORPHINE
     Indication: DRUG DEPENDENCE
     Dosage: 4 MG, QD
     Route: 048

REACTIONS (3)
  - Drug abuse [Recovered/Resolved]
  - Tremor [Recovered/Resolved]
  - Vomiting [Recovered/Resolved]

NARRATIVE: CASE EVENT DATE: 20140123
